FAERS Safety Report 12138202 (Version 1)
Quarter: 2016Q1

REPORT INFORMATION
  Report Type: Spontaneous
  Country: US (occurrence: US)
  Receive Date: 20160302
  Receipt Date: 20160302
  Transmission Date: 20160526
  Serious: Yes (Other)
  Sender: FDA-Public Use
  Company Number: US-BAYER-2016-036468

PATIENT
  Age: 70 Year
  Sex: Female
  Weight: 77.55 kg

DRUGS (14)
  1. BAYER GENUINE ASPIRIN [Suspect]
     Active Substance: ASPIRIN
     Indication: CARDIOVASCULAR EVENT PROPHYLAXIS
  2. NEXIUM [Concomitant]
     Active Substance: ESOMEPRAZOLE MAGNESIUM
  3. DIOVAN [Concomitant]
     Active Substance: VALSARTAN
  4. NIFEDIPINE. [Concomitant]
     Active Substance: NIFEDIPINE
  5. ALEVE [Suspect]
     Active Substance: NAPROXEN SODIUM
  6. PRAVASTATIN [Concomitant]
     Active Substance: PRAVASTATIN\PRAVASTATIN SODIUM
  7. SINGULAIR [Concomitant]
     Active Substance: MONTELUKAST SODIUM
  8. SEMPREX-D [Concomitant]
     Active Substance: ACRIVASTINE\PSEUDOEPHEDRINE HYDROCHLORIDE
  9. HYDROCHLOROTHIAZIDE. [Concomitant]
     Active Substance: HYDROCHLOROTHIAZIDE
  10. PROAIR HFA [Concomitant]
     Active Substance: ALBUTEROL SULFATE
  11. CELECOXIB. [Concomitant]
     Active Substance: CELECOXIB
  12. NOVOLOG [Concomitant]
     Active Substance: INSULIN ASPART
  13. POTASSIUM CHLORIDE. [Concomitant]
     Active Substance: POTASSIUM CHLORIDE
  14. DULERA [Concomitant]
     Active Substance: FORMOTEROL FUMARATE DIHYDRATE\MOMETASONE FUROATE

REACTIONS (4)
  - Product use issue [None]
  - Cerebrovascular accident [None]
  - Encephalitis [None]
  - Headache [None]

NARRATIVE: CASE EVENT DATE: 2012
